FAERS Safety Report 8881417 (Version 2)
Quarter: 2012Q4

REPORT INFORMATION
  Report Type: 
  Country: DE (occurrence: DE)
  Receive Date: 20121102
  Receipt Date: 20121105
  Transmission Date: 20130627
  Serious: Yes (Death, Hospitalization, Other)
  Sender: FDA-Public Use
  Company Number: DE-JNJFOC-20121016759

PATIENT
  Age: 76 Year
  Sex: Male
  Weight: 100 kg

DRUGS (9)
  1. XARELTO [Suspect]
     Indication: CEREBROVASCULAR ACCIDENT PROPHYLAXIS
     Route: 065
  2. XARELTO [Suspect]
     Indication: CEREBROVASCULAR ACCIDENT PROPHYLAXIS
     Route: 065
     Dates: end: 20121007
  3. XARELTO [Suspect]
     Indication: ATRIAL FIBRILLATION
     Route: 065
  4. XARELTO [Suspect]
     Indication: ATRIAL FIBRILLATION
     Route: 065
     Dates: end: 20121007
  5. TORASEMID [Concomitant]
     Route: 065
  6. LISINOPRIL [Concomitant]
     Route: 065
  7. HCT [Concomitant]
     Route: 065
  8. METOPROLOL SUCCINATE [Concomitant]
  9. PENTALONG [Concomitant]
     Route: 065

REACTIONS (3)
  - Intraventricular haemorrhage [Fatal]
  - Pneumonia [Fatal]
  - Aspiration [Unknown]
